FAERS Safety Report 14667374 (Version 1)
Quarter: 2018Q1

REPORT INFORMATION
  Report Type: Spontaneous
  Country: FR (occurrence: FR)
  Receive Date: 20180322
  Receipt Date: 20180322
  Transmission Date: 20180509
  Serious: Yes (Hospitalization)
  Sender: FDA-Public Use
  Company Number: FR-MERCK KGAA-2044288

PATIENT
  Sex: Male

DRUGS (2)
  1. NOVOTHYROX [Suspect]
     Active Substance: LEVOTHYROXINE SODIUM
  2. NOVOTHYROX [Suspect]
     Active Substance: LEVOTHYROXINE SODIUM
     Indication: HYPOTHYROIDISM

REACTIONS (18)
  - Gastrointestinal disorder [None]
  - Weight increased [None]
  - Pain in extremity [None]
  - Speech disorder [None]
  - Gait inability [None]
  - Depressed mood [None]
  - Pain [None]
  - Palpitations [None]
  - Fear [None]
  - Loss of personal independence in daily activities [None]
  - Fatigue [None]
  - Eyelid ptosis [None]
  - Dyspnoea [None]
  - Depression [None]
  - Disturbance in attention [None]
  - Myalgia [None]
  - Amnesia [None]
  - Headache [None]
